FAERS Safety Report 6410583-8 (Version None)
Quarter: 2009Q4

REPORT INFORMATION
  Report Type: 
  Country: None (occurrence: None)
  Receive Date: 20091021
  Receipt Date: 20091021
  Transmission Date: 20100525
  Serious: Yes (Death)
  Sender: FDA-Public Use
  Company Number: None

PATIENT
  Age: 50 Year
  Sex: Male
  Weight: 101.6057 kg

DRUGS (1)
  1. 5-AMINOLEVULINIC ACID [Suspect]
     Indication: NERVOUS SYSTEM NEOPLASM SURGERY
     Dosage: 2040MG, SINGLE DOSE, PO INGESTED AT  7:56 AM
     Route: 048
     Dates: start: 20090914

REACTIONS (5)
  - BRAIN MIDLINE SHIFT [None]
  - CEREBRAL INFARCTION [None]
  - DEPRESSED LEVEL OF CONSCIOUSNESS [None]
  - GENERAL PHYSICAL HEALTH DETERIORATION [None]
  - TREATMENT FAILURE [None]
